FAERS Safety Report 5085157-4 (Version None)
Quarter: 2006Q3

REPORT INFORMATION
  Report Type: 
  Country: None (occurrence: None)
  Receive Date: 20060720
  Receipt Date: 20050914
  Transmission Date: 20061208
  Serious: Yes (Other)
  Sender: FDA-Public Use
  Company Number: 2005069202

PATIENT
  Age: 54 Year
  Sex: Male
  Weight: 90.7194 kg

DRUGS (7)
  1. CELEBREX [Suspect]
     Indication: ACCIDENT
     Dosage: 400 MG (200 MG,2 IN 1 D),ORAL
     Route: 048
     Dates: start: 20000830, end: 20010301
  2. CELEBREX [Suspect]
     Indication: ARTHRITIS
     Dosage: 400 MG (200 MG,2 IN 1 D),ORAL
     Route: 048
     Dates: start: 20000830, end: 20010301
  3. CELEBREX [Suspect]
     Indication: BACK PAIN
     Dosage: 400 MG (200 MG,2 IN 1 D),ORAL
     Route: 048
     Dates: start: 20000830, end: 20010301
  4. ZOCOR [Concomitant]
  5. OXYCOD (OXYCODONE HYDROCHLORIDE) [Concomitant]
  6. ASPIRIN [Concomitant]
  7. ZANTAC [Concomitant]

REACTIONS (4)
  - CHEST PAIN [None]
  - ILL-DEFINED DISORDER [None]
  - MYOCARDIAL INFARCTION [None]
  - VOMITING [None]
